APPROVED DRUG PRODUCT: MENOSTAR
Active Ingredient: ESTRADIOL
Strength: 0.014MG/24HR
Dosage Form/Route: SYSTEM;TRANSDERMAL
Application: N021674 | Product #001 | TE Code: AB
Applicant: BAYER HEALTHCARE PHARMACEUTICALS INC
Approved: Jun 8, 2004 | RLD: Yes | RS: Yes | Type: RX